FAERS Safety Report 8845106 (Version 2)
Quarter: 2012Q4

REPORT INFORMATION
  Report Type: 
  Country: US (occurrence: US)
  Receive Date: 20121017
  Receipt Date: 20121128
  Transmission Date: 20130627
  Serious: Yes (Hospitalization, Other)
  Sender: FDA-Public Use
  Company Number: US-ASTELLAS-2012US010082

PATIENT
  Age: 64 Year
  Sex: Male
  Weight: 87 kg

DRUGS (2)
  1. PROGRAF [Suspect]
     Indication: LIVER TRANSPLANT
     Dosage: 2 mg, UID/QD
     Route: 048
  2. TACROLIMUS [Suspect]
     Indication: PRODUCT USED FOR UNKNOWN INDICATION
     Dosage: UNK
     Route: 065

REACTIONS (10)
  - Surgery [Unknown]
  - Chest tube insertion [Unknown]
  - Fistula [Unknown]
  - Drug level changed [Unknown]
  - Blood bilirubin abnormal [Unknown]
  - Hospitalisation [Unknown]
  - Renal failure [Unknown]
  - Staphylococcal infection [Unknown]
  - Platelet count decreased [Unknown]
  - Atrial fibrillation [Unknown]
